FAERS Safety Report 24386946 (Version 4)
Quarter: 2025Q1

REPORT INFORMATION
  Report Type: Spontaneous
  Country: JP (occurrence: JP)
  Receive Date: 20241002
  Receipt Date: 20250331
  Transmission Date: 20250409
  Serious: Yes (Death, Hospitalization, Other)
  Sender: AMGEN
  Company Number: JP-KISSEI-TV20240760_P_1

PATIENT
  Age: 91 Year
  Sex: Female
  Weight: 43 kg

DRUGS (17)
  1. TAVNEOS [Suspect]
     Active Substance: AVACOPAN
     Indication: Microscopic polyangiitis
     Dosage: 60 MG, PER DAY
     Route: 048
     Dates: start: 20221006, end: 20221201
  2. AMENAMEVIR [Suspect]
     Active Substance: AMENAMEVIR
     Indication: Herpes zoster
     Route: 048
     Dates: start: 20221117, end: 20221123
  3. PREDONINE [Concomitant]
     Active Substance: PREDNISOLONE
     Indication: Microscopic polyangiitis
     Dosage: 20,MG,QD
     Route: 065
     Dates: start: 20220727, end: 20221207
  4. RITUXIMAB [Concomitant]
     Active Substance: RITUXIMAB
     Route: 040
  5. CEFMETAZOLE [Concomitant]
     Active Substance: CEFMETAZOLE
     Route: 065
  6. SULFAMETHOXAZOLE\TRIMETHOPRIM [Concomitant]
     Active Substance: SULFAMETHOXAZOLE\TRIMETHOPRIM
     Indication: Antifungal prophylaxis
     Route: 048
     Dates: end: 20221201
  7. SILODOSIN [Concomitant]
     Active Substance: SILODOSIN
     Dosage: 8,MG,QD
     Route: 048
  8. CILOSTAZOL [Concomitant]
     Active Substance: CILOSTAZOL
     Dosage: 100,MG,QD
     Route: 048
  9. ASPIRIN [Concomitant]
     Active Substance: ASPIRIN
     Dosage: 100,MG,QD
     Route: 048
  10. NICERGOLINE [Concomitant]
     Active Substance: NICERGOLINE
     Dosage: 15,MG,QD
     Route: 048
  11. SULFAMETHOXAZOLE\TRIMETHOPRIM [Concomitant]
     Active Substance: SULFAMETHOXAZOLE\TRIMETHOPRIM
     Dosage: .5,MG,QD
     Route: 048
     Dates: start: 202206
  12. BELSOMRA [Concomitant]
     Active Substance: SUVOREXANT
     Dosage: 15,MG,QD
     Route: 048
     Dates: start: 202204
  13. PANTETHINE [Concomitant]
     Active Substance: PANTETHINE
     Dosage: 60,MG,QD
     Route: 048
  14. REPAGLINIDE [Concomitant]
     Active Substance: REPAGLINIDE
     Dosage: .25,MG,QD
     Route: 048
     Dates: start: 202208
  15. TOFOGLIFLOZIN [Concomitant]
     Active Substance: TOFOGLIFLOZIN
     Dosage: 10,MG,QD
     Route: 048
     Dates: start: 202208
  16. MIYA-BM [Concomitant]
     Active Substance: CLOSTRIDIUM BUTYRICUM SPORES STRAIN M-55
     Dosage: 3,DF,QD
     Route: 048
  17. MAGNESIUM OXIDE [Concomitant]
     Active Substance: MAGNESIUM OXIDE
     Dosage: 3,DF,QD
     Route: 048

REACTIONS (6)
  - Hepatitis fulminant [Fatal]
  - Yellow skin [Fatal]
  - Decreased appetite [Fatal]
  - Blood bilirubin abnormal [Fatal]
  - Jaundice [Fatal]
  - Herpes zoster [Unknown]

NARRATIVE: CASE EVENT DATE: 20221101
